FAERS Safety Report 9299370 (Version 2)
Quarter: 2013Q4

REPORT INFORMATION
  Report Type: Spontaneous
  Country: US (occurrence: US)
  Receive Date: 20130520
  Receipt Date: 20131106
  Transmission Date: 20140711
  Serious: Yes (Hospitalization)
  Sender: FDA-Public Use
  Company Number: US-B.I. PHARMACEUTICALS,INC./RIDGEFIELD-2013-BI-13751BP

PATIENT
  Age: 87 Year
  Sex: Female
  Weight: 49.9 kg

DRUGS (9)
  1. PRADAXA [Suspect]
     Indication: ANTICOAGULANT THERAPY
     Dosage: 150 MG
     Route: 048
     Dates: start: 20111012, end: 20111021
  2. PRADAXA [Suspect]
     Indication: HEART RATE IRREGULAR
  3. ASPIRIN [Concomitant]
  4. BENICAR [Concomitant]
     Dates: start: 2006, end: 2012
  5. NEURONTIN [Concomitant]
     Dates: start: 2003
  6. LASIX [Concomitant]
     Dates: start: 2006, end: 2012
  7. ALBUTEROL [Concomitant]
  8. ATROVENT [Concomitant]
  9. OXYBUTYNIN [Concomitant]
     Dates: start: 2006, end: 2012

REACTIONS (3)
  - Gastrointestinal haemorrhage [Recovered/Resolved]
  - Haemorrhagic anaemia [Unknown]
  - Renal failure acute [Unknown]
